FAERS Safety Report 8073214-X (Version None)
Quarter: 2012Q1

REPORT INFORMATION
  Report Type: 
  Country: None (occurrence: None)
  Receive Date: 20120126
  Receipt Date: 20120125
  Transmission Date: 20120608
  Serious: Yes (Other)
  Sender: FDA-Public Use
  Company Number: PHEH2012US001431

PATIENT
  Age: 63 Year
  Sex: Male

DRUGS (18)
  1. LINUM USITATISSIMUM SEED [Concomitant]
     Dosage: UNK
  2. NIACIN [Concomitant]
     Dosage: UNK
  3. COENZYME Q10 [Concomitant]
     Dosage: UNK
  4. VITAMIN E [Concomitant]
     Dosage: UNK
  5. CRESTOR [Concomitant]
     Dosage: 40 MG, UNK
  6. ZETIA [Concomitant]
     Dosage: UNK
  7. CINNAMON [Concomitant]
     Dosage: UNK
  8. DIOVAN HCT [Suspect]
     Dosage: 1 DF (320/25MG), QD
  9. VITAMIN D [Concomitant]
     Dosage: 1000 IU, UNK
  10. GLIPIZIDE [Concomitant]
     Dosage: UNK
  11. ASPIRIN [Concomitant]
     Dosage: 81 MG, UNK
  12. METFORMIN HCL [Concomitant]
     Dosage: UNK
  13. AMLODIPINE BESYLATE [Concomitant]
     Dosage: UNK
  14. MULTIPLE VITAMINS [Concomitant]
     Dosage: UNK
  15. TRADJENTA [Concomitant]
     Dosage: UNK
  16. FISH OIL [Concomitant]
     Dosage: UNK
  17. ALPHA LIPOIC ACID [Concomitant]
     Dosage: UNK
  18. GARLIC [Concomitant]
     Dosage: UNK

REACTIONS (1)
  - DIABETES MELLITUS [None]
